FAERS Safety Report 12307577 (Version 1)
Quarter: 2016Q2

REPORT INFORMATION
  Report Type: Spontaneous
  Country: US (occurrence: US)
  Receive Date: 20160426
  Receipt Date: 20160426
  Transmission Date: 20160815
  Serious: No
  Sender: FDA-Public Use
  Company Number: US-MDT-ADR-2016-00385

PATIENT
  Age: 35 Year
  Sex: Male

DRUGS (1)
  1. LIORESAL [Suspect]
     Active Substance: BACLOFEN
     Dosage: 174.9 MCG/DAY
     Route: 034

REACTIONS (2)
  - Complication associated with device [Recovered/Resolved]
  - Adhesion [Recovered/Resolved]
